FAERS Safety Report 16629615 (Version 1)
Quarter: 2019Q3

REPORT INFORMATION
  Report Type: Other
  Country: FR (occurrence: FR)
  Receive Date: 20190725
  Receipt Date: 20190725
  Transmission Date: 20191004
  Serious: Yes (Other)
  Sender: FDA-Public Use
  Company Number: FR-CELLTRION INC.-2019FR022924

PATIENT

DRUGS (1)
  1. REMSIMA [Suspect]
     Active Substance: INFLIXIMAB
     Indication: CROHN^S DISEASE
     Dosage: 5 MG/KG, 8 WEEK
     Route: 042
     Dates: start: 20180515, end: 20180515

REACTIONS (3)
  - Condition aggravated [Unknown]
  - Product substitution issue [Recovered/Resolved]
  - Alopecia areata [Unknown]

NARRATIVE: CASE EVENT DATE: 201805
